FAERS Safety Report 5085842-4 (Version None)
Quarter: 2006Q3

REPORT INFORMATION
  Report Type: 
  Country: None (occurrence: None)
  Receive Date: 20060817
  Receipt Date: 20060810
  Transmission Date: 20061208
  Serious: Yes (Hospitalization)
  Sender: FDA-Public Use
  Company Number: 2006VX001066

PATIENT
  Age: 54 Year
  Sex: Female
  Weight: 58.514 kg

DRUGS (3)
  1. INTERFERON ALFACON-1 [Suspect]
     Indication: HEPATITIS C
     Dosage: 15 UG;QD;SC
     Route: 058
     Dates: start: 20060606, end: 20060726
  2. RIBAVIRIN [Suspect]
     Indication: HEPATITIS C
     Dosage: 800 MG;PO
     Route: 048
  3. PROCRIT [Concomitant]

REACTIONS (2)
  - APHASIA [None]
  - LIVER FUNCTION TEST ABNORMAL [None]
